FAERS Safety Report 7486425-9 (Version None)
Quarter: 2011Q2

REPORT INFORMATION
  Report Type: 
  Country: None (occurrence: None)
  Receive Date: 20110516
  Receipt Date: 20110516
  Transmission Date: 20111010
  Serious: No
  Sender: FDA-Public Use
  Company Number: None

PATIENT
  Age: 60 Year
  Sex: Female
  Weight: 79.3795 kg

DRUGS (1)
  1. ZETIA [Suspect]
     Indication: BLOOD CHOLESTEROL INCREASED
     Dosage: 10MG 1X DAY PO
     Route: 048
     Dates: start: 20110401, end: 20110513

REACTIONS (2)
  - MUSCULAR WEAKNESS [None]
  - MYALGIA [None]
